FAERS Safety Report 10812111 (Version 1)
Quarter: 2015Q1

REPORT INFORMATION
  Report Type: Spontaneous
  Country: CA (occurrence: None)
  Receive Date: 20150212
  Receipt Date: 20150212
  Transmission Date: 20150721
  Serious: Yes (Other)
  Sender: FDA-Public Use
  Company Number: CA15-94

PATIENT
  Age: 38 Year
  Sex: Female

DRUGS (3)
  1. ZOFRAN [Suspect]
     Active Substance: ONDANSETRON HYDROCHLORIDE
     Indication: VOMITING IN PREGNANCY
     Dosage: NOT OTHERWISE SPECIFIED
     Route: 042
  2. DICLECTIN [Suspect]
     Active Substance: DOXYLAMINE\PYRIDOXINE
     Indication: PRODUCT USED FOR UNKNOWN INDICATION
  3. ZOFRAN [Suspect]
     Active Substance: ONDANSETRON HYDROCHLORIDE
     Indication: VOMITING IN PREGNANCY

REACTIONS (7)
  - Dizziness [None]
  - Abortion spontaneous [None]
  - Off label use [None]
  - Confusional state [None]
  - Maternal drugs affecting foetus [None]
  - Heart rate irregular [None]
  - Feeling hot [None]
